FAERS Safety Report 21440235 (Version 1)
Quarter: 2022Q4

REPORT INFORMATION
  Report Type: Spontaneous
  Country: US (occurrence: US)
  Receive Date: 20221011
  Receipt Date: 20221011
  Transmission Date: 20230113
  Serious: Yes (Hospitalization)
  Sender: FDA-Public Use
  Company Number: US-AMNEAL PHARMACEUTICALS-2021-AMRX-05384

PATIENT
  Age: 74 Year
  Sex: Female
  Weight: 67.7 kg

DRUGS (2)
  1. LIORESAL [Suspect]
     Active Substance: BACLOFEN
     Indication: Muscle spasticity
     Dosage: 534.8 ?G, \DAY
     Route: 037
     Dates: end: 20210804
  2. LIORESAL [Suspect]
     Active Substance: BACLOFEN
     Dosage: 417.5 ?G, \DAY
     Route: 037
     Dates: start: 20210804

REACTIONS (4)
  - Respiratory rate decreased [Recovered/Resolved]
  - Blood pressure decreased [Recovered/Resolved]
  - Lethargy [Recovered/Resolved]
  - Somnolence [Recovered/Resolved]

NARRATIVE: CASE EVENT DATE: 20210801
